FAERS Safety Report 4919851-X (Version None)
Quarter: 2006Q1

REPORT INFORMATION
  Report Type: 
  Country: None (occurrence: None)
  Receive Date: 20060216
  Receipt Date: 20060131
  Transmission Date: 20060701
  Serious: Yes (Other)
  Sender: FDA-Public Use
  Company Number: CZ-2006-001987

PATIENT
  Age: 50 Year
  Sex: Male

DRUGS (8)
  1. BETAFERON (INTERFERON BETA - 1B) INJECTION, 250UG [Suspect]
     Indication: RELAPSING-REMITTING MULTIPLE SCLEROSIS
     Dosage: 9.6 MIU, EVERY 2D, SUBCUTANEOUS
     Route: 058
     Dates: start: 19980823, end: 20060125
  2. PREDNISONUM [Concomitant]
  3. POTASSIUM CHLORIDE [Concomitant]
  4. BACLOFEN [Concomitant]
  5. VIREGYT-K (AMANTADINE HYDROCHLORIDE) [Concomitant]
  6. CITALEC (CITALOPRAM HYDROBROMIDE) [Concomitant]
  7. IBALGIN [Concomitant]
  8. ZOLPIDEM TARTRATE [Concomitant]

REACTIONS (4)
  - FACE OEDEMA [None]
  - OEDEMA PERIPHERAL [None]
  - PRURITUS [None]
  - RASH [None]
